FAERS Safety Report 4633287-0 (Version None)
Quarter: 2005Q2

REPORT INFORMATION
  Report Type: 
  Country: None (occurrence: None)
  Receive Date: 20050412
  Receipt Date: 20050405
  Transmission Date: 20051028
  Serious: Yes (Hospitalization)
  Sender: FDA-Public Use
  Company Number: US-ABBOTT-05P-163-0296286-00

PATIENT
  Age: 4 Year
  Sex: Male

DRUGS (2)
  1. DEPAKENE [Suspect]
     Indication: CONVULSION
     Dosage: NOT REPORTED
  2. CORTICOTROPIN [Suspect]
     Indication: INFANTILE SPASMS
     Dosage: NOT REPORTED

REACTIONS (14)
  - BLOOD PRESSURE IMMEASURABLE [None]
  - HYPERTENSION [None]
  - HYPOTONIA [None]
  - INFECTED CYST [None]
  - IRRITABILITY [None]
  - LETHARGY [None]
  - LIVEDO RETICULARIS [None]
  - PANCREATITIS HAEMORRHAGIC [None]
  - PETECHIAE [None]
  - PLEURAL EFFUSION [None]
  - PO2 DECREASED [None]
  - POOR PERIPHERAL CIRCULATION [None]
  - PULMONARY OEDEMA [None]
  - URINE OUTPUT DECREASED [None]
